FAERS Safety Report 15699428 (Version 1)
Quarter: 2018Q4

REPORT INFORMATION
  Report Type: Spontaneous
  Country: US (occurrence: US)
  Receive Date: 20181207
  Receipt Date: 20181207
  Transmission Date: 20190205
  Serious: Yes (Other)
  Sender: FDA-Public Use
  Company Number: None

PATIENT
  Age: 21 Year
  Sex: Male
  Weight: 97.7 kg

DRUGS (4)
  1. FLUCONAZOLE 400 MG PO DAILY [Concomitant]
     Dates: start: 20180305, end: 20181003
  2. XARELTO [Suspect]
     Active Substance: RIVAROXABAN
     Indication: CATHETER MANAGEMENT
     Route: 048
     Dates: start: 20180613, end: 20180619
  3. CYCLOSPORINE. [Concomitant]
     Active Substance: CYCLOSPORINE
     Dates: start: 20180602, end: 20181003
  4. XARELTO [Suspect]
     Active Substance: RIVAROXABAN
     Indication: THROMBOSIS PROPHYLAXIS
     Route: 048
     Dates: start: 20180613, end: 20180619

REACTIONS (3)
  - Procedural haemorrhage [None]
  - Haemoglobin decreased [None]
  - Platelet count decreased [None]

NARRATIVE: CASE EVENT DATE: 20180621
